FAERS Safety Report 7772833-5 (Version None)
Quarter: 2011Q3

REPORT INFORMATION
  Report Type: 
  Country: None (occurrence: None)
  Receive Date: 20110922
  Receipt Date: 20101006
  Transmission Date: 20111222
  Serious: No
  Sender: FDA-Public Use
  Company Number: US-ASTRAZENECA-2010SE13166

PATIENT
  Age: 63 Year
  Sex: Male
  Weight: 90.7 kg

DRUGS (6)
  1. SIMVASTATIN [Concomitant]
  2. CITALOPRAM HYDROBROMIDE [Concomitant]
     Indication: DEPRESSION
  3. FINASTERIDE [Concomitant]
     Indication: PROSTATE CANCER
  4. TERAZOSIN HCL [Concomitant]
     Indication: PROSTATE CANCER
  5. SEROQUEL [Suspect]
     Indication: DEPRESSION
     Route: 048
     Dates: start: 20000101
  6. SEROQUEL [Suspect]
     Indication: SCHIZOPHRENIA
     Route: 048
     Dates: start: 20000101

REACTIONS (5)
  - BLOOD CHOLESTEROL INCREASED [None]
  - MUSCULOSKELETAL STIFFNESS [None]
  - DRUG INEFFECTIVE FOR UNAPPROVED INDICATION [None]
  - THERAPEUTIC RESPONSE UNEXPECTED [None]
  - INSOMNIA [None]
